FAERS Safety Report 19667153 (Version 1)
Quarter: 2021Q3

REPORT INFORMATION
  Report Type: Report from Study
  Country: AT (occurrence: AT)
  Receive Date: 20210806
  Receipt Date: 20210806
  Transmission Date: 20211014
  Serious: Yes (Other)
  Sender: FDA-Public Use
  Company Number: AT-ACCORD-233893

PATIENT
  Age: 79 Year
  Sex: Female
  Weight: 48 kg

DRUGS (32)
  1. CIPROXINE [Concomitant]
     Active Substance: CIPROFLOXACIN
     Indication: GASTROENTERITIS RADIATION
     Dosage: ONGOING ? NOT CHECKED
     Dates: start: 20181118
  2. GUTTALAX [Concomitant]
     Dosage: UNK
     Dates: start: 20191115
  3. NYSTATIN. [Concomitant]
     Active Substance: NYSTATIN
     Indication: MUCOSAL INFLAMMATION
     Dosage: ONGOING ? NOT CHECKED
     Dates: start: 20190819
  4. METAMIZOLE SODIUM [Concomitant]
     Active Substance: METAMIZOLE SODIUM
     Dosage: ONGOING ? NOT CHECKED
     Dates: start: 20181126, end: 20191103
  5. TAMOXIFEN [Suspect]
     Active Substance: TAMOXIFEN
     Indication: BREAST CANCER
     Dosage: 20 MILLIGRAM
     Route: 048
     Dates: start: 20190819, end: 20190827
  6. SIMETICONE/SODIUM CYCLAMATE/SORBIC ACID [Concomitant]
     Dosage: ONGOING ? CHECKED
     Dates: start: 20181126
  7. PIPERACILLIN SODIUM/TAZOBACTAM SODIUM [Concomitant]
     Active Substance: PIPERACILLIN SODIUM\TAZOBACTAM SODIUM
     Indication: INFECTION
     Dosage: ONGOING ? NOT CHECKED
     Dates: start: 20191102, end: 20191113
  8. PACLITAXEL/PACLITAXEL LIPOSOME [Suspect]
     Active Substance: PACLITAXEL
     Indication: BREAST CANCER
     Dosage: 113.69 MILLIGRAM, EVERY 1 WEEK (MOST RECENT DOSE 14/SEP/2018)
     Route: 042
     Dates: start: 20180810
  9. TRASTUZUMAB/EMTANSINE [Suspect]
     Active Substance: ADO-TRASTUZUMAB EMTANSINE
     Indication: BREAST CANCER
     Dosage: 154 MG EVERY 3 WEEKS
     Route: 042
     Dates: start: 20190704, end: 20190704
  10. CEOLAT [Concomitant]
     Dosage: UNK
     Dates: start: 20191115
  11. ENTEROBENE [Concomitant]
     Indication: DIARRHOEA
     Dosage: ONGOING ? CHECKED
     Dates: start: 20181127
  12. MOLAXOLE [Concomitant]
     Active Substance: POLYETHYLENE GLYCOL 3350\POTASSIUM CHLORIDE\SODIUM BICARBONATE\SODIUM CHLORIDE
     Dosage: UNK
     Dates: start: 20191115
  13. FULVESTRANT. [Suspect]
     Active Substance: FULVESTRANT
     Indication: BREAST CANCER
     Dosage: 500 MILLIGRAM, Q4WEEKS
     Route: 030
     Dates: start: 20190919, end: 20191112
  14. PALBOCICLIB [Suspect]
     Active Substance: PALBOCICLIB
     Indication: BREAST CANCER
     Dosage: 125 MILLIGRAM (MOST RECENT DOSE 18/OCT/2019)
     Route: 048
     Dates: start: 20190919
  15. PERTUZUMAB. [Suspect]
     Active Substance: PERTUZUMAB
     Indication: BREAST CANCER
     Dosage: 840 MILLIGRAM EVERY 3 WEEKS (MOST RECENT DOSE PRIOR TO THE EVENT: 31/AUG/2018)
     Route: 042
     Dates: start: 20180810
  16. TRITTICO [Concomitant]
     Active Substance: TRAZODONE HYDROCHLORIDE
     Dosage: UNK (ONGOING ? CHECKED)
  17. CAPHOSOL [Concomitant]
     Active Substance: CALCIUM CHLORIDE\SODIUM CHLORIDE\SODIUM PHOSPHATE, DIBASIC, ANHYDROUS\SODIUM PHOSPHATE, MONOBASIC, ANHYDROUS
     Indication: MUCOSAL INFLAMMATION
     Dosage: ONGOING ? NOT CHECKED
     Dates: start: 20180921
  18. DEXIBUPROFEN [Concomitant]
     Active Substance: DEXIBUPROFEN
     Indication: OSTEONECROSIS OF JAW
     Dosage: UNK
     Dates: start: 20190725, end: 20191015
  19. VENDAL [Concomitant]
     Active Substance: MORPHINE
     Indication: DYSPNOEA
     Dosage: UNK
     Dates: start: 20191111
  20. TRASTUZUMAB. [Suspect]
     Active Substance: TRASTUZUMAB
     Indication: BREAST CANCER
     Route: 042
     Dates: start: 20181019, end: 20181019
  21. AVELOX [Concomitant]
     Active Substance: MOXIFLOXACIN HYDROCHLORIDE
     Indication: OSTEONECROSIS OF JAW
     Dosage: ONGOING ? NOT CHECKED
     Dates: start: 20190919, end: 20191101
  22. FORTECORTIN [Concomitant]
     Active Substance: DEXAMETHASONE
     Dosage: UNK
     Dates: start: 20191115
  23. LASIX [Concomitant]
     Active Substance: FUROSEMIDE
     Indication: OEDEMA PERIPHERAL
     Dosage: UNK
     Dates: start: 20191106, end: 20191115
  24. PANTOPRAZOLE [Concomitant]
     Active Substance: PANTOPRAZOLE
     Indication: ABDOMINAL PAIN UPPER
     Dosage: ONGOING ? NOT CHECKED
     Dates: start: 20181109, end: 20191101
  25. TEMESTA [Concomitant]
     Dosage: ONGOING ? CHECKED
  26. TRASTUZUMAB. [Suspect]
     Active Substance: TRASTUZUMAB
     Indication: BREAST CANCER
     Route: 042
     Dates: start: 20180928, end: 20180928
  27. PACLITAXEL/PACLITAXEL LIPOSOME [Suspect]
     Active Substance: PACLITAXEL
     Indication: BREAST CANCER
     Dosage: 142.11 MG, EVERY 1 WEEK (MOST RECENT DOSE PRIOR TO THE EVENT: 19/OCT/2018)
     Route: 042
     Dates: start: 20180928, end: 20181005
  28. LETROZOLE. [Suspect]
     Active Substance: LETROZOLE
     Indication: BREAST CANCER
     Dosage: 2.5 MILLIGRAM, QD (ON 13/JUN/2019, MOST RECENT DOSE)
     Route: 048
     Dates: start: 20181029
  29. KONAKION [Concomitant]
     Active Substance: PHYTONADIONE
     Dosage: UNK
     Dates: start: 20191115
  30. PARKEMED [Concomitant]
     Active Substance: MEFENAMIC ACID
     Indication: ARTHRALGIA
     Dosage: ONGOING ? CHECKED
     Dates: start: 20180914
  31. PASPERTIN [Concomitant]
     Indication: NAUSEA
     Dosage: UNK
     Dates: start: 20191108, end: 20191115
  32. TRASTUZUMAB. [Suspect]
     Active Substance: TRASTUZUMAB
     Indication: BREAST CANCER
     Dosage: 384 MG EVERY 3 WEEKS (MOST RECENT DOSE PRIOR TO THE EVENT: 19/AUG/2019)
     Route: 042
     Dates: start: 20180810, end: 20180831

REACTIONS (5)
  - Neutrophil count decreased [Recovered/Resolved]
  - Overdose [Unknown]
  - White blood cell count decreased [Recovered/Resolved]
  - Ascites [Recovering/Resolving]
  - Underdose [Unknown]

NARRATIVE: CASE EVENT DATE: 20191004
